FAERS Safety Report 25951972 (Version 2)
Quarter: 2025Q4

REPORT INFORMATION
  Report Type: Report from Study
  Country: TR (occurrence: TR)
  Receive Date: 20251023
  Receipt Date: 20251121
  Transmission Date: 20260118
  Serious: Yes (Hospitalization)
  Sender: MYLAN
  Company Number: TR-MYLANLABS-2025M1089048

PATIENT
  Age: 18 Year
  Sex: Female

DRUGS (2)
  1. CLOZAPINE [Suspect]
     Active Substance: CLOZAPINE
     Dosage: 250 MILLIGRAM, QD
     Dates: start: 2017, end: 2017
  2. VALPROIC ACID [Concomitant]
     Active Substance: VALPROIC ACID
     Indication: Bipolar disorder
     Dosage: 1250 MILLIGRAM, QD

REACTIONS (4)
  - Myocarditis [Recovered/Resolved]
  - C-reactive protein increased [Recovered/Resolved]
  - Supraventricular tachycardia [Recovered/Resolved]
  - Pericardial effusion [Recovered/Resolved]
